FAERS Safety Report 9299381 (Version 2)
Quarter: 2014Q3

REPORT INFORMATION
  Report Type: Spontaneous
  Country: US (occurrence: US)
  Receive Date: 20130520
  Receipt Date: 20140912
  Transmission Date: 20150326
  Serious: Yes (Hospitalization, Other)
  Sender: FDA-Public Use
  Company Number: US-B.I. PHARMACEUTICALS,INC./RIDGEFIELD-2011-BP-11069BP

PATIENT
  Age: 84 Year
  Sex: Female

DRUGS (2)
  1. PRADAXA [Suspect]
     Active Substance: DABIGATRAN ETEXILATE MESYLATE
     Indication: ANTICOAGULANT THERAPY
     Dosage: 300 MG
     Route: 048
     Dates: end: 201202
  2. PRADAXA [Suspect]
     Active Substance: DABIGATRAN ETEXILATE MESYLATE
     Indication: ATRIAL FIBRILLATION
     Dosage: 300 MG
     Route: 065
     Dates: start: 20110218, end: 20120105

REACTIONS (8)
  - Haemorrhagic anaemia [Unknown]
  - Diverticulum [Unknown]
  - Diarrhoea [Unknown]
  - Haemorrhagic anaemia [Recovered/Resolved]
  - Arteriovenous malformation [Unknown]
  - Gastrointestinal haemorrhage [Recovered/Resolved]
  - Lower gastrointestinal haemorrhage [Unknown]
  - Hypotension [Recovered/Resolved]

NARRATIVE: CASE EVENT DATE: 20110401
